FAERS Safety Report 9607873 (Version 1)
Quarter: 2013Q4

REPORT INFORMATION
  Report Type: Spontaneous
  Country: US (occurrence: None)
  Receive Date: 20131008
  Receipt Date: 20131008
  Transmission Date: 20140711
  Serious: No
  Sender: FDA-Public Use
  Company Number: None

PATIENT
  Age: 5 Year
  Sex: Male
  Weight: 24.95 kg

DRUGS (1)
  1. PEDIACARE [Suspect]
     Indication: TOOTH DISORDER

REACTIONS (1)
  - Liquid product physical issue [None]
